FAERS Safety Report 6158317-9 (Version None)
Quarter: 2009Q2

REPORT INFORMATION
  Report Type: 
  Country: None (occurrence: None)
  Receive Date: 20090417
  Receipt Date: 20090408
  Transmission Date: 20091009
  Serious: Yes (Hospitalization, Other)
  Sender: FDA-Public Use
  Company Number: US-BIOGENIDEC-2009BI010951

PATIENT
  Age: 46 Year
  Sex: Female
  Weight: 111 kg

DRUGS (5)
  1. AVONEX [Suspect]
     Indication: MULTIPLE SCLEROSIS
     Route: 030
     Dates: start: 19960101, end: 20030101
  2. AVONEX [Suspect]
     Route: 030
     Dates: start: 20030101
  3. AVONEX [Suspect]
     Route: 030
  4. DEPAKOTE [Concomitant]
     Indication: EPILEPSY
     Route: 048
  5. DILANTIN [Concomitant]
     Indication: EPILEPSY
     Route: 048

REACTIONS (14)
  - ANAEMIA [None]
  - BLINDNESS [None]
  - CARDIAC DISORDER [None]
  - CEREBROVASCULAR ACCIDENT [None]
  - CONVULSION [None]
  - DIABETES MELLITUS [None]
  - DYSGEUSIA [None]
  - HYPERTENSION [None]
  - MULTIPLE SCLEROSIS RELAPSE [None]
  - OPTIC NEURITIS [None]
  - PNEUMONIA [None]
  - RECTAL HAEMORRHAGE [None]
  - STAPHYLOCOCCAL INFECTION [None]
  - UTERINE CANCER [None]
